FAERS Safety Report 7671272-5 (Version None)
Quarter: 2011Q3

REPORT INFORMATION
  Report Type: 
  Country: None (occurrence: None)
  Receive Date: 20110809
  Receipt Date: 20110726
  Transmission Date: 20111222
  Serious: Yes (Hospitalization)
  Sender: FDA-Public Use
  Company Number: FR-CELGENEUS-056-50794-11072985

PATIENT
  Sex: Female

DRUGS (2)
  1. VIDAZA [Suspect]
     Indication: MYELODYSPLASTIC SYNDROME
     Dosage: 130 MILLIGRAM
     Route: 058
     Dates: start: 20110627, end: 20110701
  2. LENALIDOMIDE [Suspect]
     Indication: MYELODYSPLASTIC SYNDROME
     Dosage: 5 MILLIGRAM
     Route: 048
     Dates: start: 20110627, end: 20110717

REACTIONS (3)
  - HAEMATOMA [None]
  - THROMBOCYTOPENIA [None]
  - FEBRILE NEUTROPENIA [None]
